FAERS Safety Report 10034600 (Version 1)
Quarter: 2014Q1

REPORT INFORMATION
  Report Type: Spontaneous
  Country: IT (occurrence: IT)
  Receive Date: 20140325
  Receipt Date: 20140325
  Transmission Date: 20141002
  Serious: Yes (Other)
  Sender: FDA-Public Use
  Company Number: IT-MYLANLABS-2014S1005894

PATIENT
  Age: 68 Year
  Sex: Male
  Weight: 88 kg

DRUGS (7)
  1. IRINOTECAN HYDROCHLORIDE TRIHYDRATE [Suspect]
     Indication: RECTAL CANCER METASTATIC
     Dosage: 350 MG CYCLICAL
     Route: 042
     Dates: start: 20130619
  2. ERBITUX [Suspect]
     Indication: RECTAL CANCER METASTATIC
     Dosage: 950 MG CYCLICAL
     Route: 042
     Dates: start: 20130619
  3. FLUOROURACIL [Suspect]
     Indication: RECTAL CANCER METASTATIC
     Dosage: 790 MG CYCLICAL
     Route: 040
     Dates: start: 20130619
  4. FLUOROURACIL [Suspect]
     Indication: RECTAL CANCER METASTATIC
     Dosage: 4560 MG CYCLICAL
     Route: 041
     Dates: start: 20130619
  5. SOLOSA [Concomitant]
     Indication: DIABETES MELLITUS
  6. METFONORM [Concomitant]
     Indication: DIABETES MELLITUS
  7. LEVOFOLINIC ACID [Concomitant]
     Indication: PRODUCT USED FOR UNKNOWN INDICATION
     Dosage: 390 MG
     Route: 042
     Dates: start: 20130619, end: 20131017

REACTIONS (1)
  - Gravitational oedema [Not Recovered/Not Resolved]
